FAERS Safety Report 5711817-5 (Version None)
Quarter: 2008Q3

REPORT INFORMATION
  Report Type: 
  Country: None (occurrence: None)
  Receive Date: 20080416
  Receipt Date: 20080327
  Transmission Date: 20090109
  Serious: Yes (Hospitalization)
  Sender: FDA-Public Use
  Company Number: 2008JP001625

PATIENT
  Age: 25 Year
  Sex: Male

DRUGS (4)
  1. PROTOPIC [Suspect]
     Indication: DERMATITIS ATOPIC
     Dosage: TOPICAL
     Route: 061
  2. GENINAX(GARENOXACIN MESILATE HYDRATE) [Suspect]
     Indication: PYREXIA
     Dosage: 400 MG, /D, ORAL
     Route: 048
     Dates: start: 20080201, end: 20080201
  3. AZITHROMYCIN [Suspect]
     Indication: PYREXIA
     Dosage: ORAL
     Route: 048
     Dates: start: 20080101
  4. AVELOX [Suspect]
     Indication: PYREXIA
     Dosage: ORAL
     Route: 048
     Dates: start: 20080101

REACTIONS (2)
  - ENDOCARDITIS [None]
  - PLATELET COUNT DECREASED [None]
